FAERS Safety Report 8735894 (Version 3)
Quarter: 2013Q3

REPORT INFORMATION
  Report Type: Report from Study
  Country: US (occurrence: US)
  Receive Date: 20120822
  Receipt Date: 20130703
  Transmission Date: 20140515
  Serious: No
  Sender: FDA-Public Use
  Company Number: US-JNJFOC-20120809169

PATIENT
  Age: 13 Year
  Sex: Male
  Weight: 46.8 kg

DRUGS (6)
  1. REMICADE [Suspect]
     Indication: INFLAMMATORY BOWEL DISEASE
     Route: 042
     Dates: start: 20111209
  2. GRIS-PEG [Concomitant]
  3. LAMISIL [Concomitant]
  4. TUMS [Concomitant]
  5. ZINC OXIDE [Concomitant]
  6. ANTIFUNGAL CREAM [Concomitant]

REACTIONS (1)
  - Psoriasis [Not Recovered/Not Resolved]
